FAERS Safety Report 15810452 (Version 1)
Quarter: 2019Q1

REPORT INFORMATION
  Report Type: Spontaneous
  Country: US (occurrence: US)
  Receive Date: 20190111
  Receipt Date: 20190111
  Transmission Date: 20190417
  Serious: No
  Sender: FDA-Public Use
  Company Number: US-ROCHE-2053442

PATIENT

DRUGS (10)
  1. XELJANZ [Concomitant]
     Active Substance: TOFACITINIB CITRATE
  2. ENBREL [Concomitant]
     Active Substance: ETANERCEPT
  3. PLAQUENIL [Concomitant]
     Active Substance: HYDROXYCHLOROQUINE SULFATE
  4. ACTEMRA [Suspect]
     Active Substance: TOCILIZUMAB
     Indication: PRODUCT USED FOR UNKNOWN INDICATION
     Route: 042
  5. LEFLUNOMIDE. [Concomitant]
     Active Substance: LEFLUNOMIDE
  6. ORENCIA [Concomitant]
     Active Substance: ABATACEPT
  7. RITUXAN [Suspect]
     Active Substance: RITUXIMAB
     Indication: RHEUMATOID ARTHRITIS
     Route: 065
  8. HUMIRA [Concomitant]
     Active Substance: ADALIMUMAB
  9. MORPHINE [Concomitant]
     Active Substance: MORPHINE
  10. REMICADE [Concomitant]
     Active Substance: INFLIXIMAB

REACTIONS (2)
  - Injection site reaction [Unknown]
  - Drug ineffective [Unknown]
